FAERS Safety Report 4716154-3 (Version None)
Quarter: 2005Q3

REPORT INFORMATION
  Report Type: 
  Country: None (occurrence: None)
  Receive Date: 20050718
  Receipt Date: 20050311
  Transmission Date: 20060218
  Serious: Yes (Hospitalization, Disabling)
  Sender: FDA-Public Use
  Company Number: US-MERCK-0503USA02650

PATIENT
  Age: 54 Year
  Sex: Male
  Weight: 113 kg

DRUGS (8)
  1. VIOXX [Suspect]
     Indication: ARTHRALGIA
     Route: 048
     Dates: start: 19990901, end: 19991001
  2. VIOXX [Suspect]
     Route: 048
     Dates: start: 19991001, end: 20040901
  3. VIOXX [Suspect]
     Route: 048
     Dates: start: 19990826, end: 19990831
  4. VIOXX [Suspect]
     Route: 048
     Dates: start: 19990901
  5. VIOXX [Suspect]
     Route: 048
  6. VIOXX [Suspect]
     Route: 048
     Dates: end: 20040401
  7. WELLBUTRIN [Concomitant]
     Route: 065
     Dates: end: 20031001
  8. XANAX [Concomitant]
     Route: 065
     Dates: start: 19910101

REACTIONS (12)
  - ARTERIAL OCCLUSIVE DISEASE [None]
  - ASTHMA [None]
  - CORONARY ARTERY DISEASE [None]
  - DEEP VEIN THROMBOSIS [None]
  - DEPRESSION [None]
  - DIVERTICULITIS [None]
  - HERNIA [None]
  - HYPERCHOLESTEROLAEMIA [None]
  - HYPERTENSION [None]
  - MYOCARDIAL INFARCTION [None]
  - PULMONARY EMBOLISM [None]
  - THROMBOSIS [None]
